FAERS Safety Report 10720264 (Version 2)
Quarter: 2015Q1

REPORT INFORMATION
  Report Type: Spontaneous
  Country: US (occurrence: US)
  Receive Date: 20150119
  Receipt Date: 20150120
  Transmission Date: 20150721
  Serious: Yes (Other)
  Sender: FDA-Public Use
  Company Number: US-JNJFOC-20150102324

PATIENT
  Sex: Male
  Weight: 74.84 kg

DRUGS (2)
  1. LEVAQUIN [Suspect]
     Active Substance: LEVOFLOXACIN
     Indication: PROSTATIC DISORDER
     Route: 048
  2. LEVAQUIN [Suspect]
     Active Substance: LEVOFLOXACIN
     Indication: PROSTATIC DISORDER
     Route: 048
     Dates: start: 2010, end: 2015

REACTIONS (4)
  - Arthropathy [Unknown]
  - Product use issue [Unknown]
  - Meniscus injury [Unknown]
  - Rotator cuff syndrome [Unknown]
